FAERS Safety Report 18694520 (Version 1)
Quarter: 2020Q4

REPORT INFORMATION
  Report Type: Spontaneous
  Country: US (occurrence: US)
  Receive Date: 20201231
  Receipt Date: 20201231
  Transmission Date: 20210114
  Serious: Yes (Hospitalization)
  Sender: FDA-Public Use
  Company Number: None

PATIENT
  Age: 23 Year
  Sex: Female
  Weight: 67.5 kg

DRUGS (3)
  1. XULANE [Concomitant]
     Active Substance: ETHINYL ESTRADIOL\NORELGESTROMIN
  2. ANNOVERA [Suspect]
     Active Substance: ETHINYL ESTRADIOL\SEGESTERONE ACETATE
     Indication: CONTRACEPTION
     Dosage: ?          QUANTITY:1 1 RING;OTHER FREQUENCY:VAGINAL;?
     Route: 067
     Dates: start: 20201130, end: 20201231
  3. TORODAL ORAL [Concomitant]

REACTIONS (4)
  - Abdominal pain [None]
  - Back pain [None]
  - Pelvic infection [None]
  - Vaginal haemorrhage [None]

NARRATIVE: CASE EVENT DATE: 20201212
